FAERS Safety Report 10055535 (Version 3)
Quarter: 2016Q1

REPORT INFORMATION
  Report Type: Report from Study
  Country: CA (occurrence: CA)
  Receive Date: 20140403
  Receipt Date: 20160304
  Transmission Date: 20160525
  Serious: Yes (Other)
  Sender: FDA-Public Use
  Company Number: CA-ROCHE-1372194

PATIENT

DRUGS (1)
  1. ALTEPLASE [Suspect]
     Active Substance: ALTEPLASE
     Indication: INTRAVENTRICULAR HAEMORRHAGE
     Dosage: FOR A MAXIMUM OF 5 DOSES.
     Route: 050

REACTIONS (2)
  - Cerebral infarction [Unknown]
  - Cerebral ischaemia [Unknown]
